FAERS Safety Report 12671270 (Version 1)
Quarter: 2016Q3

REPORT INFORMATION
  Report Type: Spontaneous
  Country: US (occurrence: US)
  Receive Date: 20160822
  Receipt Date: 20160822
  Transmission Date: 20161109
  Serious: No
  Sender: FDA-Public Use
  Company Number: US-TEVA-608615USA

PATIENT
  Sex: Female
  Weight: 90 kg

DRUGS (6)
  1. WARFARIN [Concomitant]
     Active Substance: WARFARIN
  2. DIURETICS [Concomitant]
     Active Substance: UNSPECIFIED INGREDIENT
  3. ANTIHYPERTENSIVES [Concomitant]
     Active Substance: UNSPECIFIED INGREDIENT
  4. FLUTICASONE [Concomitant]
     Active Substance: FLUTICASONE\FLUTICASONE PROPIONATE
  5. FEXOFENADINE [Suspect]
     Active Substance: FEXOFENADINE\FEXOFENADINE HYDROCHLORIDE
     Indication: PERENNIAL ALLERGY
     Dosage: 180 MILLIGRAM DAILY;
     Route: 048
     Dates: start: 2015
  6. POTASSIUM [Concomitant]
     Active Substance: POTASSIUM

REACTIONS (2)
  - Medication residue present [Recovered/Resolved]
  - Product solubility abnormal [Recovered/Resolved]

NARRATIVE: CASE EVENT DATE: 2015
